FAERS Safety Report 7234849-7 (Version None)
Quarter: 2011Q1

REPORT INFORMATION
  Report Type: 
  Country: None (occurrence: None)
  Receive Date: 20110120
  Receipt Date: 20110110
  Transmission Date: 20110831
  Serious: Yes (Other)
  Sender: FDA-Public Use
  Company Number: CA-JNJFOC-20081003086

PATIENT
  Age: 48 Year
  Sex: Female

DRUGS (2)
  1. INVEGA [Suspect]
     Indication: BIPOLAR DISORDER
     Route: 048
  2. INVEGA [Suspect]
     Route: 048

REACTIONS (7)
  - APATHY [None]
  - HAIR DISORDER [None]
  - VISUAL IMPAIRMENT [None]
  - BREAST CANCER [None]
  - AMENORRHOEA [None]
  - CRYING [None]
  - SCAB [None]
